FAERS Safety Report 8718966 (Version 2)
Quarter: 2013Q4

REPORT INFORMATION
  Report Type: Spontaneous
  Country: US (occurrence: US)
  Receive Date: 20120811
  Receipt Date: 20131101
  Transmission Date: 20140711
  Serious: No
  Sender: FDA-Public Use
  Company Number: US-009507513-1208USA003150

PATIENT
  Age: 25 Year
  Sex: Female
  Weight: 75.28 kg

DRUGS (1)
  1. IMPLANON [Suspect]
     Indication: CONTRACEPTION
     Dosage: 1 DF, UNK
     Route: 059
     Dates: start: 20110302, end: 20120727

REACTIONS (2)
  - Device breakage [Unknown]
  - No adverse event [Unknown]
